FAERS Safety Report 7439820-8 (Version None)
Quarter: 2011Q2

REPORT INFORMATION
  Report Type: 
  Country: None (occurrence: None)
  Receive Date: 20110427
  Receipt Date: 20110425
  Transmission Date: 20111010
  Serious: Yes (Other)
  Sender: FDA-Public Use
  Company Number: JP-SANOFI-AVENTIS-2011SA025327

PATIENT

DRUGS (2)
  1. CLARITHROMYCIN [Suspect]
  2. ALLEGRA [Suspect]
     Route: 065

REACTIONS (1)
  - NEPHRITIS [None]
